FAERS Safety Report 21329446 (Version 1)
Quarter: 2022Q3

REPORT INFORMATION
  Report Type: Spontaneous
  Country: US (occurrence: None)
  Receive Date: 20220913
  Receipt Date: 20220913
  Transmission Date: 20221026
  Serious: Yes (Hospitalization)
  Sender: FDA-Public Use
  Company Number: None

PATIENT
  Age: 76 Year
  Sex: Male

DRUGS (2)
  1. IBUPROFEN [Suspect]
     Active Substance: IBUPROFEN
     Dosage: FREQUENCY : TWICE A DAY;?
     Route: 048
     Dates: start: 20220508, end: 20220904
  2. APIXABAN [Suspect]
     Active Substance: APIXABAN
     Dosage: FREQUENCY : TWICE A DAY;?

REACTIONS (3)
  - Gastric haemorrhage [None]
  - Melaena [None]
  - Haemoglobin decreased [None]

NARRATIVE: CASE EVENT DATE: 20220904
